FAERS Safety Report 22331810 (Version 1)
Quarter: 2023Q2

REPORT INFORMATION
  Report Type: Spontaneous
  Country: US (occurrence: US)
  Receive Date: 20230517
  Receipt Date: 20230517
  Transmission Date: 20230721
  Serious: Yes (Other)
  Sender: FDA-Public Use
  Company Number: US-PFIZER INC-PV202300086324

PATIENT
  Age: 8 Year
  Sex: Female

DRUGS (1)
  1. OXBRYTA [Suspect]
     Active Substance: VOXELOTOR
     Dosage: 600 MG, DAILY (DISSOLVED IN CLEAR LIQUID)

REACTIONS (1)
  - Adenotonsillectomy [Recovering/Resolving]

NARRATIVE: CASE EVENT DATE: 20230401
